FAERS Safety Report 12109123 (Version 4)
Quarter: 2016Q2

REPORT INFORMATION
  Report Type: Report from Study
  Country: RU (occurrence: RU)
  Receive Date: 20160224
  Receipt Date: 20160421
  Transmission Date: 20160815
  Serious: Yes (Life-Threatening, Hospitalization, Disabling, Other)
  Sender: FDA-Public Use
  Company Number: PHHY2016RU020588

PATIENT
  Age: 39 Year
  Sex: Female
  Weight: 60 kg

DRUGS (3)
  1. PROGRAF [Suspect]
     Active Substance: TACROLIMUS\TACROLIMUS ANHYDROUS
     Indication: RENAL TRANSPLANT
     Route: 065
  2. DOSTINEX [Interacting]
     Active Substance: CABERGOLINE
     Indication: SUPPRESSED LACTATION
     Dosage: 2.5 DF, UNK
     Route: 048
     Dates: start: 201601
  3. CERTICAN [Suspect]
     Active Substance: EVEROLIMUS
     Indication: RENAL TRANSPLANT
     Dosage: UNK
     Route: 048
     Dates: start: 201201, end: 20160212

REACTIONS (3)
  - Maternal exposure during pregnancy [Unknown]
  - Drug interaction [Unknown]
  - Rhabdomyolysis [Recovering/Resolving]

NARRATIVE: CASE EVENT DATE: 20160115
